FAERS Safety Report 25793222 (Version 2)
Quarter: 2025Q3

REPORT INFORMATION
  Report Type: Report from Study
  Country: US (occurrence: US)
  Receive Date: 20250911
  Receipt Date: 20250918
  Transmission Date: 20251020
  Serious: Yes (Life-Threatening, Hospitalization, Other)
  Sender: IMMUNOCORE
  Company Number: US-IMMUNOCORE, LTD-2025-IMC-004670

PATIENT
  Age: 79 Year
  Sex: Female

DRUGS (1)
  1. KIMMTRAK [Suspect]
     Active Substance: TEBENTAFUSP-TEBN
     Indication: Metastatic ocular melanoma
     Dates: start: 20250826

REACTIONS (11)
  - Pulseless electrical activity [Unknown]
  - Bradycardia [Unknown]
  - Cardiac arrest [Unknown]
  - Blood pressure abnormal [Unknown]
  - Cytokine release syndrome [Unknown]
  - Peripheral swelling [Unknown]
  - Pyrexia [Unknown]
  - Nausea [Unknown]
  - Contusion [Unknown]
  - Poor peripheral circulation [Unknown]
  - Product dose omission issue [Unknown]

NARRATIVE: CASE EVENT DATE: 20250826
